FAERS Safety Report 8227837 (Version 4)
Quarter: 2013Q2

REPORT INFORMATION
  Report Type: Spontaneous
  Country: US (occurrence: US)
  Receive Date: 20111103
  Receipt Date: 20130610
  Transmission Date: 20140414
  Serious: Yes (Other)
  Sender: FDA-Public Use
  Company Number: US-ASTRAZENECA-2011SE64471

PATIENT
  Age: 54 Year
  Sex: Female
  Weight: 59 kg

DRUGS (25)
  1. NEXIUM [Suspect]
     Indication: DYSPEPSIA
     Route: 048
     Dates: start: 2010
  2. NEXIUM [Suspect]
     Indication: OESOPHAGEAL CARCINOMA
     Route: 048
     Dates: start: 2010
  3. NEXIUM [Suspect]
     Indication: DYSPEPSIA
     Route: 048
  4. NEXIUM [Suspect]
     Indication: OESOPHAGEAL CARCINOMA
     Route: 048
  5. SEROQUEL [Suspect]
     Indication: DEPRESSION
     Route: 048
     Dates: start: 2008
  6. SEROQUEL [Suspect]
     Indication: NERVE INJURY
     Route: 048
     Dates: start: 2008
  7. CRESTOR [Suspect]
     Indication: BLOOD CHOLESTEROL INCREASED
     Route: 048
     Dates: start: 2009
  8. CRESTOR [Suspect]
     Indication: HYPERTENSION
     Route: 048
     Dates: start: 2009
  9. LAMICTAL [Concomitant]
     Indication: CONVULSION
     Route: 048
     Dates: start: 201109
  10. LAMICTAL [Concomitant]
     Indication: NERVE INJURY
     Route: 048
     Dates: start: 201109
  11. ATIVAN [Concomitant]
     Indication: DEPRESSION
     Route: 048
     Dates: start: 2007
  12. ATENOLOL [Concomitant]
     Indication: HYPERTENSION
     Route: 048
     Dates: start: 2010
  13. MORPHINE EXTENDED RELEASE [Concomitant]
     Indication: PAIN
     Route: 048
     Dates: start: 2009
  14. MORPHINE EXTENDED RELEASE [Concomitant]
     Indication: FIBROMYALGIA
     Route: 048
     Dates: start: 2009
  15. MORPHINE EXTENDED RELEASE [Concomitant]
     Indication: NERVE INJURY
     Route: 048
     Dates: start: 2009
  16. MORPHINE FAST ACTING [Concomitant]
     Indication: PAIN
     Route: 048
     Dates: start: 2008
  17. PHENERGAN [Concomitant]
     Indication: NAUSEA
     Route: 048
  18. FIORICET [Concomitant]
     Indication: MIGRAINE
     Dosage: AS NEEDED
     Route: 048
  19. FIORICET [Concomitant]
     Indication: HEADACHE
     Dosage: AS NEEDED
     Route: 048
  20. ASPIRIN [Concomitant]
     Indication: CARDIAC DISORDER
     Route: 048
  21. CARAFATE [Concomitant]
     Indication: OESOPHAGEAL DISORDER
     Dosage: 10 ML TAKEN EVERY 4 HOURS
     Route: 048
  22. XANAX [Concomitant]
     Indication: ANXIETY
  23. XANAX [Concomitant]
     Indication: DEPRESSION
  24. ZOLOFT [Concomitant]
     Indication: DEPRESSION
     Route: 048
  25. NITROGLYCERIN [Concomitant]
     Dosage: AS NEEDED EVERY 4-6 HOURS
     Route: 048

REACTIONS (11)
  - Oesophageal carcinoma [Unknown]
  - Lower limb fracture [Unknown]
  - Myocardial infarction [Unknown]
  - Pain [Unknown]
  - Amnesia [Unknown]
  - Paraesthesia [Unknown]
  - Off label use [Unknown]
  - Dyspepsia [Unknown]
  - Retching [Unknown]
  - Adverse event [Unknown]
  - Drug ineffective [Unknown]
